FAERS Safety Report 23213449 (Version 1)
Quarter: 2023Q4

REPORT INFORMATION
  Report Type: Spontaneous
  Country: CN (occurrence: CN)
  Receive Date: 20231121
  Receipt Date: 20231121
  Transmission Date: 20240109
  Serious: Yes (Death)
  Sender: FDA-Public Use
  Company Number: CN-AMGEN-CHNSP2023205053

PATIENT
  Age: 29 Year
  Sex: Female

DRUGS (3)
  1. BLINATUMOMAB [Suspect]
     Active Substance: BLINATUMOMAB
     Indication: B-cell type acute leukaemia
     Dosage: 9 MICROGRAM, QD (FOR THE FIRST WEEK)
     Route: 065
  2. BLINATUMOMAB [Suspect]
     Active Substance: BLINATUMOMAB
     Dosage: 28 MICROGRAM, QD (FOR 21 DAYS)
     Route: 065
  3. OLVEREMBATINIB [Suspect]
     Active Substance: OLVEREMBATINIB
     Indication: B-cell type acute leukaemia
     Dosage: 40 MILLIGRAM (EVERY 2 DAYS)
     Route: 048

REACTIONS (1)
  - COVID-19 pneumonia [Fatal]
